FAERS Safety Report 24561339 (Version 1)
Quarter: 2024Q4

REPORT INFORMATION
  Report Type: Spontaneous
  Country: US (occurrence: US)
  Receive Date: 20241029
  Receipt Date: 20241029
  Transmission Date: 20250114
  Serious: Yes (Hospitalization, Other)
  Sender: MERZ
  Company Number: US-MRZWEB-2024100000174

PATIENT

DRUGS (1)
  1. BOTULINUM TOXIN TYPE A [Suspect]
     Active Substance: BOTULINUM TOXIN TYPE A
     Indication: Oesophageal stenosis
     Dosage: 100 INTERNATIONAL UNIT
     Route: 030

REACTIONS (2)
  - Paralysis recurrent laryngeal nerve [Recovered/Resolved]
  - Off label use [Unknown]
